FAERS Safety Report 8459610 (Version 4)
Quarter: 2013Q2

REPORT INFORMATION
  Report Type: Spontaneous
  Country: US (occurrence: US)
  Receive Date: 20120314
  Receipt Date: 20130528
  Transmission Date: 20140414
  Serious: Yes (Hospitalization)
  Sender: FDA-Public Use
  Company Number: US-ASTRAZENECA-2012SE05792

PATIENT
  Age: 78 Year
  Sex: Female

DRUGS (5)
  1. TOPROL XL [Suspect]
     Route: 048
  2. TOPROL XL [Suspect]
     Dosage: GENERIC
     Route: 065
  3. METOPROLOL [Suspect]
     Dosage: GENERIC
     Route: 065
  4. PLAVIX [Concomitant]
  5. AVAPRO [Concomitant]

REACTIONS (4)
  - Hip fracture [Unknown]
  - Hypertension [Unknown]
  - Palpitations [Unknown]
  - Drug effect incomplete [Unknown]
